FAERS Safety Report 21736295 (Version 1)
Quarter: 2022Q4

REPORT INFORMATION
  Report Type: Report from Study
  Country: US (occurrence: US)
  Receive Date: 20221215
  Receipt Date: 20221215
  Transmission Date: 20230112
  Serious: No
  Sender: FDA-Public Use
  Company Number: US-ACADIA PHARMACEUTICALS INC.-ACA-2022-PIM-004096

PATIENT
  Sex: Male

DRUGS (15)
  1. NUPLAZID [Suspect]
     Active Substance: PIMAVANSERIN TARTRATE
     Indication: Parkinson^s disease
     Dosage: 10 MILLIGRAM, QD
     Route: 048
     Dates: start: 20221005
  2. ALBUTEROL [Concomitant]
     Active Substance: ALBUTEROL
     Dosage: 0.083%
  3. ALEVE [Concomitant]
     Active Substance: NAPROXEN SODIUM
     Dosage: 220 MILLIGRAM
  4. ARFORMOTEROL [Concomitant]
     Active Substance: ARFORMOTEROL
     Dosage: 15/2 ML
  5. ASPIRIN [Concomitant]
     Active Substance: ASPIRIN
     Dosage: 81 MILLIGRAM
  6. BUDESONIDE [Concomitant]
     Active Substance: BUDESONIDE
     Dosage: 0.5 MG/2
  7. CHLORTHALIDONE [Concomitant]
     Active Substance: CHLORTHALIDONE
     Dosage: 25 MILLIGRAM
  8. LISINOPRIL [Concomitant]
     Active Substance: LISINOPRIL
     Dosage: 20 MILLIGRAM
  9. MELATONIN [Concomitant]
     Active Substance: MELATONIN
     Dosage: 3 MILLIGRAM
  10. MELATONIN [Concomitant]
     Active Substance: MELATONIN
     Dosage: 5 MILLIGRAM
  11. MEMANTINE [Concomitant]
     Active Substance: MEMANTINE
     Dosage: 5 MILLIGRAM
  12. NAMENDA [Concomitant]
     Active Substance: MEMANTINE HYDROCHLORIDE
     Dosage: 10 MILLIGRAM
  13. PROAIR HFA [Concomitant]
     Active Substance: ALBUTEROL SULFATE
  14. MENTHOL [Concomitant]
     Active Substance: MENTHOL
     Dosage: 20-400
  15. ROSUVASTATIN [Concomitant]
     Active Substance: ROSUVASTATIN
     Dosage: 10 MILLIGRAM

REACTIONS (2)
  - Dizziness [Not Recovered/Not Resolved]
  - Nonspecific reaction [Not Recovered/Not Resolved]
